FAERS Safety Report 6272749-X (Version None)
Quarter: 2009Q3

REPORT INFORMATION
  Report Type: 
  Country: None (occurrence: None)
  Receive Date: 20090717
  Receipt Date: 20090710
  Transmission Date: 20100115
  Serious: Yes (Other)
  Sender: FDA-Public Use
  Company Number: US-GILEAD-2009-0022852

PATIENT
  Sex: Female
  Weight: 57.658 kg

DRUGS (10)
  1. LETAIRIS [Suspect]
     Indication: PULMONARY ARTERIAL HYPERTENSION
     Route: 048
  2. LETAIRIS [Suspect]
     Route: 048
     Dates: start: 20080418
  3. REVATIO [Concomitant]
  4. LISINOPRIL [Concomitant]
  5. SOTALOL [Concomitant]
  6. CEFTIN [Concomitant]
  7. PRILOSEC [Concomitant]
  8. COENZYME Q10 [Concomitant]
  9. CENTRUM [Concomitant]
  10. FLAXSEED OIL [Concomitant]

REACTIONS (2)
  - RED BLOOD CELL COUNT DECREASED [None]
  - SMALL INTESTINAL HAEMORRHAGE [None]
